FAERS Safety Report 5747029-9 (Version None)
Quarter: 2008Q2

REPORT INFORMATION
  Report Type: 
  Country: None (occurrence: None)
  Receive Date: 20080522
  Receipt Date: 20080507
  Transmission Date: 20081010
  Serious: Yes (Hospitalization)
  Sender: FDA-Public Use
  Company Number: GB-AMGEN-US264900

PATIENT
  Sex: Female
  Weight: 111 kg

DRUGS (18)
  1. ENBREL [Suspect]
     Indication: RHEUMATOID ARTHRITIS
     Route: 058
     Dates: start: 20070523
  2. PREDNISOLONE [Concomitant]
     Dosage: UNKNOWN
     Route: 065
  3. ADIZEM [Concomitant]
     Dosage: UNKNOWN
     Route: 065
  4. CO-DYDRAMOL [Concomitant]
     Dosage: UNKNOWN
     Route: 065
  5. HYDROXYCHLOROQUINE SULFATE [Concomitant]
     Dosage: UNKNOWN
     Route: 065
  6. INDAPAMIDE [Concomitant]
     Dosage: UNKNOWN
     Route: 065
  7. INSULATARD [Concomitant]
     Dosage: UNKNOWN
     Route: 065
  8. MELOXICAM [Concomitant]
     Dosage: UNKNOWN
     Route: 065
  9. NOVORAPID [Concomitant]
     Dosage: UNKNOWN
     Route: 065
  10. OMEPRAZOLE [Concomitant]
     Dosage: UNKNOWN
     Route: 065
  11. SIMVASTATIN [Concomitant]
     Dosage: UNKNOWN
     Route: 065
  12. SPIRONOLACTONE [Concomitant]
     Dosage: UNKNOWN
     Route: 065
  13. TELMISARTAN [Concomitant]
     Dosage: UNKNOWN
     Route: 065
  14. TERAZOSIN HCL [Concomitant]
     Dosage: UNKNOWN
     Route: 065
  15. TRAMADOL HCL [Concomitant]
     Dosage: UNKNOWN
     Route: 065
  16. METHOTREXATE [Concomitant]
     Dosage: UNKNOWN
     Route: 065
     Dates: start: 20060603
  17. AZATHIOPRINE [Concomitant]
     Dosage: UNKNOWN
     Route: 065
  18. UNSPECIFIED HORMONE REPLACEMENT THERAPY AGENT [Concomitant]

REACTIONS (1)
  - BREAST CANCER [None]
